FAERS Safety Report 8010086-3 (Version None)
Quarter: 2011Q4

REPORT INFORMATION
  Report Type: 
  Country: None (occurrence: None)
  Receive Date: 20111228
  Receipt Date: 20111220
  Transmission Date: 20120403
  Serious: Yes (Other)
  Sender: FDA-Public Use
  Company Number: JP-BRISTOL-MYERS SQUIBB COMPANY-16238677

PATIENT
  Age: 89 Year
  Sex: Female

DRUGS (6)
  1. ASPIRIN [Concomitant]
     Route: 048
  2. IRBESARTAN [Suspect]
     Indication: HYPERTENSION
     Dosage: STOP DATE:24OCT2011.
     Route: 048
     Dates: start: 20111006, end: 20111024
  3. KETOPROFEN [Concomitant]
     Dosage: TAPE
     Route: 062
  4. LASIX [Concomitant]
     Indication: HYPERTENSION
     Route: 048
     Dates: start: 19970101
  5. METHYCOBAL [Concomitant]
     Indication: DIABETES MELLITUS
     Route: 048
     Dates: start: 19990524
  6. MAGNESIUM SULFATE [Concomitant]
     Route: 048

REACTIONS (1)
  - CARDIAC FAILURE [None]
